FAERS Safety Report 7009701-2 (Version None)
Quarter: 2010Q3

REPORT INFORMATION
  Report Type: 
  Country: None (occurrence: None)
  Receive Date: 20100923
  Receipt Date: 20100915
  Transmission Date: 20110219
  Serious: Yes (Other)
  Sender: FDA-Public Use
  Company Number: GB-PFIZER INC-2010116592

PATIENT
  Age: 65 Year
  Sex: Female

DRUGS (5)
  1. LIPITOR [Suspect]
     Dosage: 10 MG, UNK
  2. LANSOPRAZOLE [Concomitant]
     Dosage: UNK
  3. FLUCONAZOLE [Concomitant]
  4. BISOPROLOL FUMARATE [Concomitant]
     Dosage: UNK
  5. DOSULEPIN [Concomitant]
     Dosage: UNK

REACTIONS (2)
  - CHOKING SENSATION [None]
  - SWELLING FACE [None]
